FAERS Safety Report 8460707-6 (Version None)
Quarter: 2012Q2

REPORT INFORMATION
  Report Type: 
  Country: None (occurrence: None)
  Receive Date: 20120622
  Receipt Date: 20120618
  Transmission Date: 20120825
  Serious: Yes (Hospitalization)
  Sender: FDA-Public Use
  Company Number: DE-AMGEN-DEUCT2012000559

PATIENT
  Age: 67 Year
  Sex: Male
  Weight: 73 kg

DRUGS (20)
  1. FLUOROURACIL [Concomitant]
     Indication: COLORECTAL CANCER METASTATIC
     Dates: start: 20111014, end: 20111222
  2. DOXYCYCLINE [Concomitant]
     Indication: RASH
     Dosage: 100 MG, UNK
     Route: 048
     Dates: start: 20110603
  3. METRONIDAZOLE [Concomitant]
     Indication: RASH
     Dosage: UNK UNK, UNK
     Route: 061
     Dates: start: 20110716
  4. LACTULOSE [Concomitant]
     Indication: CONSTIPATION
     Dosage: UNK
     Route: 048
     Dates: start: 20111014, end: 20111014
  5. VITAMIN B-12 [Concomitant]
     Indication: NEUROPATHY PERIPHERAL
     Dosage: UNK UNK, UNK
     Route: 042
     Dates: start: 20110520
  6. OXALIPLATIN [Concomitant]
     Indication: COLORECTAL CANCER METASTATIC
     Dosage: 125 MG, UNK
     Dates: start: 20111014, end: 20111222
  7. GRANISETRON HYDROCHLORIDE [Concomitant]
     Indication: NAUSEA
     Dosage: UNK UNK, UNK
     Route: 042
     Dates: start: 20110520
  8. IMERON [Concomitant]
     Route: 042
     Dates: start: 20110703, end: 20111222
  9. FUCIDINE CAP [Concomitant]
     Indication: RASH
     Dosage: UNK UNK, UNK
     Route: 061
     Dates: start: 20111014, end: 20111221
  10. BETAGALEN [Concomitant]
     Indication: RASH
     Dosage: 1 UNK, UNK
     Route: 061
     Dates: start: 20110712
  11. METOCLOPRAMIDE [Concomitant]
     Indication: NAUSEA
     Dosage: UNK UNK, UNK
     Route: 048
     Dates: start: 20110520, end: 20111113
  12. ZOLPIDEM [Concomitant]
     Indication: INSOMNIA
     Dosage: UNK UNK, UNK
     Route: 048
     Dates: start: 20111029, end: 20111029
  13. SALVIATHYMOL [Concomitant]
     Indication: STOMATITIS
     Dosage: 100 ML, UNK
     Dates: start: 20110520
  14. LEUCOVORIN CALCIUM [Concomitant]
     Indication: COLORECTAL CANCER METASTATIC
     Dosage: 760 MG, UNK
     Dates: start: 20111014, end: 20111222
  15. LACTULOSE [Concomitant]
     Indication: CONSTIPATION
     Dosage: UNK UNK, UNK
     Route: 048
     Dates: start: 20111014, end: 20111113
  16. ACETAMINOPHEN [Concomitant]
     Indication: RASH
     Route: 048
     Dates: start: 20111014, end: 20111014
  17. ENOXAPARIN SODIUM [Concomitant]
     Indication: THROMBOSIS
     Dosage: 0.4 ML, UNK
     Route: 058
     Dates: start: 20111201, end: 20111202
  18. PANITUMUMAB [Suspect]
     Indication: COLORECTAL CANCER METASTATIC
     Dosage: 360 MG, UNK
     Dates: start: 20110520
  19. DEXAMETHASONE SODIUM PHOSPHATE [Concomitant]
     Indication: NAUSEA
     Dosage: 4 MG, UNK
     Route: 042
     Dates: start: 20110520, end: 20111223
  20. UREA [Concomitant]
     Indication: RASH
     Dosage: UNK
     Route: 061
     Dates: start: 20110712

REACTIONS (1)
  - NAIL BED INFLAMMATION [None]
